FAERS Safety Report 6611354-X (Version None)
Quarter: 2010Q1

REPORT INFORMATION
  Report Type: 
  Country: None (occurrence: None)
  Receive Date: 20100222
  Receipt Date: 20100218
  Transmission Date: 20100710
  Serious: Yes (Hospitalization)
  Sender: FDA-Public Use
  Company Number: 2007SP013393

PATIENT
  Age: 66 Year
  Sex: Male
  Weight: 50 kg

DRUGS (12)
  1. TEMODAL [Suspect]
     Indication: GLIOBLASTOMA MULTIFORME
     Dosage: 150 MG/M2;QD;PO, 205 MG/M2;QD;PO, 300 MG/M2;QD;PO
     Route: 048
     Dates: start: 20061103, end: 20061107
  2. TEMODAL [Suspect]
     Indication: GLIOBLASTOMA MULTIFORME
     Dosage: 150 MG/M2;QD;PO, 205 MG/M2;QD;PO, 300 MG/M2;QD;PO
     Route: 048
     Dates: start: 20061201, end: 20061205
  3. TEMODAL [Suspect]
     Indication: GLIOBLASTOMA MULTIFORME
     Dosage: 150 MG/M2;QD;PO, 205 MG/M2;QD;PO, 300 MG/M2;QD;PO
     Route: 048
     Dates: start: 20061229, end: 20070102
  4. TEMODAL [Suspect]
     Indication: GLIOBLASTOMA MULTIFORME
     Dosage: 150 MG/M2;QD;PO, 205 MG/M2;QD;PO, 300 MG/M2;QD;PO
     Route: 048
     Dates: start: 20070126, end: 20070130
  5. TEMODAL [Suspect]
     Indication: GLIOBLASTOMA MULTIFORME
     Dosage: 150 MG/M2;QD;PO, 205 MG/M2;QD;PO, 300 MG/M2;QD;PO
     Route: 048
     Dates: start: 20070223, end: 20070227
  6. TEMODAL [Suspect]
     Indication: GLIOBLASTOMA MULTIFORME
     Dosage: 150 MG/M2;QD;PO, 205 MG/M2;QD;PO, 300 MG/M2;QD;PO
     Route: 048
     Dates: start: 20070323, end: 20070327
  7. TEMODAL [Suspect]
     Indication: GLIOBLASTOMA MULTIFORME
     Dosage: 150 MG/M2;QD;PO, 205 MG/M2;QD;PO, 300 MG/M2;QD;PO
     Route: 048
     Dates: start: 20070420, end: 20070424
  8. TEMODAL [Suspect]
     Indication: GLIOBLASTOMA MULTIFORME
     Dosage: 150 MG/M2;QD;PO, 205 MG/M2;QD;PO, 300 MG/M2;QD;PO
     Route: 048
     Dates: start: 20070601, end: 20070605
  9. ZOFRAN ZYDIS [Concomitant]
  10. EXCERGAN [Concomitant]
  11. PURSENNID [Concomitant]
  12. MAGNESIUM OXIDE [Concomitant]

REACTIONS (2)
  - C-REACTIVE PROTEIN INCREASED [None]
  - PNEUMONIA [None]
